FAERS Safety Report 21866293 (Version 2)
Quarter: 2023Q1

REPORT INFORMATION
  Report Type: Report from Study
  Country: US (occurrence: US)
  Receive Date: 20230116
  Receipt Date: 20230323
  Transmission Date: 20230417
  Serious: No
  Sender: FDA-Public Use
  Company Number: US-ABBVIE-4242200

PATIENT
  Age: 61 Year
  Sex: Male

DRUGS (2)
  1. HUMIRA [Suspect]
     Active Substance: ADALIMUMAB
     Indication: Rheumatoid arthritis
     Dosage: FORM STRENGTH: 40 MILLIGRAM
     Route: 058
     Dates: start: 20220302
  2. PREDNISONE [Concomitant]
     Active Substance: PREDNISONE
     Indication: Arthralgia

REACTIONS (2)
  - Myalgia [Recovering/Resolving]
  - Gait disturbance [Recovered/Resolved]

NARRATIVE: CASE EVENT DATE: 20221201
